FAERS Safety Report 9300620 (Version 1)
Quarter: 2013Q2

REPORT INFORMATION
  Report Type: Spontaneous
  Country: PL (occurrence: PL)
  Receive Date: 20130521
  Receipt Date: 20130521
  Transmission Date: 20140414
  Serious: Yes (Hospitalization)
  Sender: FDA-Public Use
  Company Number: PL-BAYER-2013-061672

PATIENT
  Age: 32 Year
  Sex: Male

DRUGS (2)
  1. ULTRAVIST [Suspect]
     Indication: ARTERIOGRAM CORONARY
     Dosage: 100 ML, ONCE
  2. LIGNOCAIN [Concomitant]
     Indication: LOCAL ANAESTHESIA
     Dosage: UNK

REACTIONS (1)
  - Blindness transient [Recovered/Resolved]
